FAERS Safety Report 18282733 (Version 1)
Quarter: 2020Q3

REPORT INFORMATION
  Report Type: Spontaneous
  Country: US (occurrence: US)
  Receive Date: 20200918
  Receipt Date: 20200918
  Transmission Date: 20201103
  Serious: Yes (Hospitalization)
  Sender: FDA-Public Use
  Company Number: US-HORIZON-PRE-0270-2020

PATIENT
  Age: 85 Year
  Sex: Male

DRUGS (3)
  1. RAYOS [Suspect]
     Active Substance: PREDNISONE
     Indication: CHRONIC OBSTRUCTIVE PULMONARY DISEASE
     Dosage: 4MG ONCE DAILY IN THE EVENING
     Dates: start: 201810
  2. VALSARTAN. [Concomitant]
     Active Substance: VALSARTAN
  3. ELIQUIS [Concomitant]
     Active Substance: APIXABAN
     Indication: HEART RATE INCREASED

REACTIONS (3)
  - Fluid retention [Not Recovered/Not Resolved]
  - Pneumonia [Unknown]
  - Oedema peripheral [Not Recovered/Not Resolved]

NARRATIVE: CASE EVENT DATE: 2019
